FAERS Safety Report 22013206 (Version 1)
Quarter: 2023Q1

REPORT INFORMATION
  Report Type: Spontaneous
  Country: TT (occurrence: TT)
  Receive Date: 20230220
  Receipt Date: 20230220
  Transmission Date: 20230418
  Serious: Yes (Other)
  Sender: FDA-Public Use
  Company Number: TT-ALLERGAN-2304156US

PATIENT
  Sex: Male

DRUGS (1)
  1. OZURDEX [Suspect]
     Active Substance: DEXAMETHASONE
     Indication: Cystoid macular oedema
     Dosage: 0.7 MG, SINGLE
     Route: 031

REACTIONS (2)
  - Implantation complication [Unknown]
  - Complication of device insertion [Unknown]
